FAERS Safety Report 5796055-2 (Version None)
Quarter: 2008Q3

REPORT INFORMATION
  Report Type: 
  Country: None (occurrence: None)
  Receive Date: 20080701
  Receipt Date: 20080625
  Transmission Date: 20090109
  Serious: Yes (Other)
  Sender: FDA-Public Use
  Company Number: US-JNJFOC-20080606550

PATIENT
  Age: 37 Year
  Sex: Male
  Weight: 63.5 kg

DRUGS (2)
  1. TOPAMAX [Suspect]
     Route: 048
  2. TOPAMAX [Suspect]
     Indication: MIGRAINE PROPHYLAXIS
     Route: 048

REACTIONS (4)
  - AGGRESSION [None]
  - HALLUCINATION [None]
  - NAUSEA [None]
  - WEIGHT DECREASED [None]
